FAERS Safety Report 5223257-6 (Version None)
Quarter: 2007Q1

REPORT INFORMATION
  Report Type: 
  Country: None (occurrence: None)
  Receive Date: 20070124
  Receipt Date: 20070116
  Transmission Date: 20070707
  Serious: Yes (Death)
  Sender: FDA-Public Use
  Company Number: GXKR2007GB00858

PATIENT
  Age: 82 Year
  Sex: Female

DRUGS (1)
  1. ASPIRIN [Suspect]
     Indication: CEREBROVASCULAR ACCIDENT PROPHYLAXIS
     Dosage: 75 MG, ORAL
     Route: 048

REACTIONS (1)
  - UPPER GASTROINTESTINAL HAEMORRHAGE [None]
